FAERS Safety Report 5659131-0 (Version None)
Quarter: 2008Q1

REPORT INFORMATION
  Report Type: 
  Country: None (occurrence: None)
  Receive Date: 20080311
  Receipt Date: 20070720
  Transmission Date: 20080703
  Serious: No
  Sender: FDA-Public Use
  Company Number: US-BAYER-200711700BCC

PATIENT
  Age: 70 Year
  Sex: Male
  Weight: 86 kg

DRUGS (6)
  1. ALEVE [Suspect]
     Indication: ARTHRITIS
     Dosage: TOTAL DAILY DOSE: 440 MG  UNIT DOSE: 220 MG
     Route: 048
     Dates: start: 20070524
  2. LEVOTHYROXINE SODIUM [Concomitant]
  3. ZETIA [Concomitant]
  4. XANAX [Concomitant]
  5. PREVACID [Concomitant]
  6. MECLIZINE [Concomitant]

REACTIONS (2)
  - BALANCE DISORDER [None]
  - DIZZINESS POSTURAL [None]
